FAERS Safety Report 10146723 (Version 1)
Quarter: 2014Q2

REPORT INFORMATION
  Report Type: Spontaneous
  Country: US (occurrence: None)
  Receive Date: 20140430
  Receipt Date: 20140430
  Transmission Date: 20141212
  Serious: Yes (Hospitalization)
  Sender: FDA-Public Use
  Company Number: None

PATIENT
  Age: 23 Year
  Sex: Female

DRUGS (5)
  1. ACETAMINOPHEN [Suspect]
     Indication: SUICIDE ATTEMPT
     Route: 048
     Dates: start: 20140223, end: 20140223
  2. DIPHENHYDRAMINE [Suspect]
  3. ALBUTEROL [Concomitant]
  4. FLUTICASONE [Concomitant]
  5. SALMETEROL [Concomitant]

REACTIONS (2)
  - Lethargy [None]
  - Mental status changes [None]
